APPROVED DRUG PRODUCT: TRUSOPT
Active Ingredient: DORZOLAMIDE HYDROCHLORIDE
Strength: EQ 2% BASE **Federal Register determination that product was not discontinued or withdrawn for safety or effectiveness reasons**
Dosage Form/Route: SOLUTION/DROPS;OPHTHALMIC
Application: N020408 | Product #001
Applicant: MERCK SHARP AND DOHME LLC A SUB OF MERCK AND CO INC
Approved: Dec 9, 1994 | RLD: Yes | RS: No | Type: DISCN